FAERS Safety Report 6414542-0 (Version None)
Quarter: 2009Q4

REPORT INFORMATION
  Report Type: 
  Country: None (occurrence: None)
  Receive Date: 20091021
  Receipt Date: 20091008
  Transmission Date: 20100525
  Serious: Yes (Hospitalization)
  Sender: FDA-Public Use
  Company Number: JHP200900317

PATIENT
  Age: 78 Year
  Sex: Male

DRUGS (9)
  1. DANTRIUM [Suspect]
     Indication: MUSCLE SPASTICITY
     Dosage: 125 MG DAILY FOR AT LEAST 2 YEARS, ORAL
     Route: 048
     Dates: end: 20090907
  2. TRAMADOL HCL [Suspect]
     Indication: DRUG USE FOR UNKNOWN INDICATION
     Dosage: 2 DOSAGE FORMS DAILY (LONG TERM TREATMENT), ORAL
     Route: 048
     Dates: end: 20090907
  3. ACETAMINOPHEN [Suspect]
     Indication: DRUG USE FOR UNKNOWN INDICATION
     Dosage: 1 TO 4 G/ DAY (LONG TERM TREATMENT), ORAL
     Route: 048
     Dates: end: 20090907
  4. BISOPROLOL FUMARATE [Concomitant]
  5. PERINDOPRIL ERBUMINE [Concomitant]
  6. AMIODARONE HCL [Concomitant]
  7. PREVISCAN (FLUINDIONE) [Concomitant]
  8. ZOLPIDEM TARTRATE [Concomitant]
  9. LASIX [Concomitant]

REACTIONS (6)
  - CYTOLYTIC HEPATITIS [None]
  - GENERAL PHYSICAL CONDITION ABNORMAL [None]
  - HEPATOMEGALY [None]
  - HYPOTENSION [None]
  - INTERNATIONAL NORMALISED RATIO INCREASED [None]
  - OVERDOSE [None]
